FAERS Safety Report 9847531 (Version 2)
Quarter: 2014Q1

REPORT INFORMATION
  Report Type: Spontaneous
  Country: US (occurrence: US)
  Receive Date: 20140128
  Receipt Date: 20140128
  Transmission Date: 20141002
  Serious: Yes (Disabling)
  Sender: FDA-Public Use
  Company Number: US-GE HEALTHCARE MEDICAL DIAGNOSTICS-OSCN-PR-0805S-0315

PATIENT
  Age: 51 Year
  Sex: Female

DRUGS (11)
  1. OMNISCAN [Suspect]
     Indication: CEREBROVASCULAR ACCIDENT
     Route: 042
     Dates: start: 20030404, end: 20030404
  2. OMNISCAN [Suspect]
     Indication: MULTIPLE SCLEROSIS
     Route: 042
     Dates: start: 20050816, end: 20050816
  3. OMNISCAN [Suspect]
     Indication: CONVULSION
  4. OMNISCAN [Suspect]
     Indication: BACK PAIN
  5. GADOLINIUM (UNSPECIFIED) [Suspect]
     Indication: PRODUCT USED FOR UNKNOWN INDICATION
     Route: 042
     Dates: start: 19981214, end: 19981214
  6. PROHANCE [Suspect]
     Indication: PRODUCT USED FOR UNKNOWN INDICATION
     Route: 042
     Dates: start: 20040629, end: 20040629
  7. PROHANCE [Suspect]
     Route: 042
     Dates: start: 20040630, end: 20040630
  8. PROHANCE [Suspect]
     Route: 042
     Dates: start: 20050430, end: 20050430
  9. PROHANCE [Suspect]
     Route: 042
     Dates: start: 20050430, end: 20050430
  10. MULTIHANCE [Suspect]
     Indication: PRODUCT USED FOR UNKNOWN INDICATION
     Route: 042
     Dates: start: 20051130, end: 20051130
  11. MULTIHANCE [Suspect]
     Route: 042
     Dates: start: 20060319, end: 20060319

REACTIONS (1)
  - Nephrogenic systemic fibrosis [Not Recovered/Not Resolved]
